FAERS Safety Report 8982719 (Version 1)
Quarter: 2012Q4

REPORT INFORMATION
  Report Type: 
  Country: US (occurrence: US)
  Receive Date: 20121212
  Receipt Date: 20121212
  Transmission Date: 20130627
  Serious: Yes (Death, Other)
  Sender: FDA-Public Use
  Company Number: US-ASTELLAS-1118972

PATIENT
  Sex: Female

DRUGS (10)
  1. TARCEVA [Suspect]
     Indication: LUNG NEOPLASM MALIGNANT
     Route: 065
     Dates: start: 2011
  2. TARCEVA [Suspect]
     Route: 065
  3. COREG [Concomitant]
  4. COMPAZINE [Concomitant]
  5. LEVALBUTEROL [Concomitant]
  6. DIGOXIN [Concomitant]
  7. FLOVENT [Concomitant]
  8. FRAGMIN [Concomitant]
  9. LASIX [Concomitant]
  10. POTASSIUM [Concomitant]

REACTIONS (4)
  - Death [Fatal]
  - Cardiac failure congestive [Unknown]
  - Rash [Unknown]
  - Diarrhoea [Unknown]
